FAERS Safety Report 10332216 (Version 1)
Quarter: 2014Q3

REPORT INFORMATION
  Report Type: Spontaneous
  Country: US (occurrence: None)
  Receive Date: 20140721
  Receipt Date: 20140721
  Transmission Date: 20150326
  Serious: Yes (Other)
  Sender: FDA-Public Use
  Company Number: None

PATIENT
  Age: 21 Year
  Sex: Male
  Weight: 65.77 kg

DRUGS (1)
  1. VYVANSE [Suspect]
     Active Substance: LISDEXAMFETAMINE DIMESYLATE
     Indication: ATTENTION DEFICIT/HYPERACTIVITY DISORDER
     Dosage: 8 MONTHS OFF AND ON

REACTIONS (5)
  - Psychotic disorder [None]
  - Insomnia [None]
  - Educational problem [None]
  - Personality change [None]
  - Weight decreased [None]

NARRATIVE: CASE EVENT DATE: 20140717
